FAERS Safety Report 18058403 (Version 1)
Quarter: 2020Q3

REPORT INFORMATION
  Report Type: Report from Study
  Country: US (occurrence: US)
  Receive Date: 20200723
  Receipt Date: 20200723
  Transmission Date: 20201103
  Serious: Yes (Other)
  Sender: FDA-Public Use
  Company Number: US-BIOGEN-2020BI00899413

PATIENT
  Age: 57 Year
  Sex: Female

DRUGS (1)
  1. TECFIDERA [Suspect]
     Active Substance: DIMETHYL FUMARATE
     Indication: MULTIPLE SCLEROSIS
     Route: 065
     Dates: start: 20160622

REACTIONS (6)
  - Frustration tolerance decreased [Unknown]
  - Cerebral cyst [Unknown]
  - Drug ineffective [Unknown]
  - Depressed mood [Unknown]
  - Pain [Unknown]
  - Gait inability [Recovered/Resolved]

NARRATIVE: CASE EVENT DATE: 202007
